FAERS Safety Report 5741110-6 (Version None)
Quarter: 2008Q2

REPORT INFORMATION
  Report Type: 
  Country: None (occurrence: None)
  Receive Date: 20080516
  Receipt Date: 20080506
  Transmission Date: 20081010
  Serious: Yes (Disabling)
  Sender: FDA-Public Use
  Company Number: FR-PFIZER INC-2008040039

PATIENT
  Sex: Male

DRUGS (6)
  1. NEURONTIN [Suspect]
     Indication: EPILEPSY
     Dosage: DAILY DOSE:1200MG
     Route: 048
  2. RIVOTRIL [Suspect]
     Indication: ANXIETY
     Dosage: DAILY DOSE:6MG
     Route: 048
  3. CLOZAPINE [Suspect]
     Indication: SCHIZOPHRENIA
     Dosage: DAILY DOSE:600MG
     Route: 048
  4. EFFEXOR [Suspect]
     Indication: DEPRESSION
     Dosage: DAILY DOSE:150MG
     Route: 048
  5. NOCTRAN 10 [Suspect]
     Indication: INSOMNIA
     Dosage: DAILY DOSE:20MG
     Route: 048
     Dates: start: 20060901
  6. DITROPAN [Concomitant]
     Route: 048

REACTIONS (1)
  - ENURESIS [None]
